FAERS Safety Report 4516452-2 (Version None)
Quarter: 2004Q4

REPORT INFORMATION
  Report Type: 
  Country: None (occurrence: None)
  Receive Date: 20041202
  Receipt Date: 20040909
  Transmission Date: 20050328
  Serious: No
  Sender: FDA-Public Use
  Company Number: US-GLAXOSMITHKLINE-A0525079A

PATIENT
  Age: 69 Year
  Sex: Female

DRUGS (4)
  1. AUGMENTIN '125' [Suspect]
     Indication: ACUTE SINUSITIS
     Dosage: 2TAB TWICE PER DAY
     Route: 048
     Dates: end: 20040909
  2. LIBRAX [Concomitant]
  3. FIORINAL [Concomitant]
  4. IRON SUPPLEMENT [Concomitant]

REACTIONS (2)
  - GLOSSODYNIA [None]
  - ORAL CANDIDIASIS [None]
